FAERS Safety Report 16542642 (Version 1)
Quarter: 2019Q3

REPORT INFORMATION
  Report Type: Other
  Country: DE (occurrence: DE)
  Receive Date: 20190709
  Receipt Date: 20190709
  Transmission Date: 20191004
  Serious: Yes (Hospitalization)
  Sender: FDA-Public Use
  Company Number: DE-LUPIN PHARMACEUTICALS INC.-2019-04276

PATIENT
  Age: 9 Year
  Sex: Female
  Weight: 31 kg

DRUGS (3)
  1. TOPIRAMAT [Suspect]
     Active Substance: TOPIRAMATE
     Indication: EPILEPSY
     Dosage: 50 MILLIGRAM, EVERY 3 DAYS
     Route: 048
  2. TOPIRAMAT [Suspect]
     Active Substance: TOPIRAMATE
     Dosage: UNK, GRADUAL INCREASE
     Route: 065
  3. BUCCOLAM [Concomitant]
     Active Substance: MIDAZOLAM HYDROCHLORIDE
     Indication: EPILEPSY
     Dosage: 7.5 MILLIGRAM
     Route: 002

REACTIONS (3)
  - Daydreaming [Unknown]
  - Bradyphrenia [Unknown]
  - Wrong product administered [Unknown]

NARRATIVE: CASE EVENT DATE: 20180821
